FAERS Safety Report 8733754 (Version 2)
Quarter: 2012Q4

REPORT INFORMATION
  Report Type: 
  Country: IE (occurrence: IE)
  Receive Date: 20120821
  Receipt Date: 20120918
  Transmission Date: 20130627
  Serious: Yes (Hospitalization, Other)
  Sender: FDA-Public Use
  Company Number: IE-MPIJNJ-2012-05755

PATIENT

DRUGS (9)
  1. VELCADE [Suspect]
     Indication: MULTIPLE MYELOMA
     Dosage: 1.3 mg/m2, UNK
     Route: 065
     Dates: start: 20120106
  2. DEXAMETHASONE [Concomitant]
  3. PROTIUM [Concomitant]
     Dosage: 40 mg, UNK
  4. VALTREX [Concomitant]
     Dosage: 500 mg, UNK
  5. ASPIRIN [Concomitant]
     Dosage: 75 mg, UNK
  6. CALCICHEW-D3 FORTE [Concomitant]
  7. MELPHALAN [Concomitant]
     Dosage: 18 mg, UNK
  8. ALLOPURINOL [Concomitant]
     Dosage: 100 mg, UNK
  9. DELTACORTRIL                       /00016201/ [Concomitant]
     Dosage: 100 mg, UNK

REACTIONS (1)
  - Blood glucose increased [Unknown]
